FAERS Safety Report 6316871-8 (Version None)
Quarter: 2009Q3

REPORT INFORMATION
  Report Type: 
  Country: None (occurrence: None)
  Receive Date: 20090820
  Receipt Date: 20090810
  Transmission Date: 20100115
  Serious: Yes (Hospitalization)
  Sender: FDA-Public Use
  Company Number: US-ELI_LILLY_AND_COMPANY-US200903006772

PATIENT
  Sex: Female

DRUGS (14)
  1. CYMBALTA [Suspect]
     Dosage: 60 MG, DAILY (1/D)
     Dates: start: 20060101
  2. CYMBALTA [Suspect]
     Dosage: 30 MG, UNK
     Dates: start: 20080522
  3. CYMBALTA [Suspect]
     Dosage: 90 MG, DAILY (1/D)
     Dates: start: 20090905
  4. ROBAXIN [Concomitant]
     Dates: start: 20090512
  5. LISINOPRIL [Concomitant]
     Dates: start: 20090512
  6. HYTRIN [Concomitant]
     Indication: HYPERHIDROSIS
     Dosage: 2 MG, DAILY (1/D)
     Route: 048
     Dates: start: 20090512
  7. ATIVAN [Concomitant]
     Dosage: 0.5 MG, DAILY (1/D)
     Route: 048
  8. ATIVAN [Concomitant]
     Dosage: 1 MG, EACH EVENING
     Route: 048
  9. LYRICA [Concomitant]
     Dosage: 75 MG, 2/D
     Route: 048
  10. LYRICA [Concomitant]
     Dosage: 150 MG, EACH EVENING
     Route: 048
  11. SEROQUEL [Concomitant]
     Dosage: 75 MG, EACH EVENING
     Route: 048
  12. REQUIP [Concomitant]
     Dosage: 1 MG, 4/D
     Route: 048
  13. ABILIFY [Concomitant]
     Dosage: 2 MG, EACH EVENING
     Route: 048
  14. ABILIFY [Concomitant]
     Dosage: 2 MG, 2/D
     Route: 048

REACTIONS (1)
  - GASTROOESOPHAGEAL REFLUX DISEASE [None]
